FAERS Safety Report 4322693-X (Version None)
Quarter: 2004Q1

REPORT INFORMATION
  Report Type: 
  Country: None (occurrence: None)
  Receive Date: 20040318
  Receipt Date: 20021226
  Transmission Date: 20041129
  Serious: Yes (Life-Threatening)
  Sender: FDA-Public Use
  Company Number: MK200212-0305-1

PATIENT
  Sex: Female

DRUGS (2)
  1. OPTIRAY 320 [Suspect]
     Indication: UROGRAPHY
     Dosage: 50CC, IV, ONCE
     Route: 042
     Dates: start: 20021207, end: 20021207
  2. OPTIRAY 320 [Suspect]
     Dosage: 20CC, IV, ONCE
     Route: 042
     Dates: start: 20021207, end: 20021207

REACTIONS (2)
  - CONVULSION [None]
  - SYNCOPE [None]
